FAERS Safety Report 8563231-5 (Version None)
Quarter: 2012Q3

REPORT INFORMATION
  Report Type: 
  Country: None (occurrence: None)
  Receive Date: 20120802
  Receipt Date: 20120726
  Transmission Date: 20120928
  Serious: No
  Sender: FDA-Public Use
  Company Number: US-AMGEN-USASP2012046808

PATIENT
  Sex: Female

DRUGS (4)
  1. ENBREL [Suspect]
     Indication: PSORIATIC ARTHROPATHY
     Dosage: 50 MG, QWK
     Dates: start: 20080101
  2. NEORAL [Concomitant]
     Dosage: 1 MG, QD
     Dates: start: 20110801
  3. ENBREL [Suspect]
     Indication: PUSTULAR PSORIASIS
  4. TREXALL [Concomitant]
     Dosage: UNK
     Dates: start: 20080101

REACTIONS (2)
  - PSORIASIS [None]
  - PSORIATIC ARTHROPATHY [None]
